FAERS Safety Report 13236007 (Version 1)
Quarter: 2017Q1

REPORT INFORMATION
  Report Type: Report from Study
  Country: None (occurrence: US)
  Receive Date: 20170215
  Receipt Date: 20170215
  Transmission Date: 20170428
  Serious: No
  Sender: FDA-Public Use
  Company Number: US-AMAG PHARMACEUTICALS, INC.-AMAG201602484

PATIENT

DRUGS (3)
  1. MAKENA [Suspect]
     Active Substance: HYDROXYPROGESTERONE CAPROATE
     Indication: PRODUCT USED FOR UNKNOWN INDICATION
     Dosage: 250 MG/ML, WEEKLY
     Route: 030
     Dates: start: 20160902
  2. LOVENOX [Concomitant]
     Active Substance: ENOXAPARIN SODIUM
     Indication: PROTEIN S DEFICIENCY
     Dosage: 40 MG, QD
     Route: 058
     Dates: start: 20160517
  3. NIFEDIPINE. [Concomitant]
     Active Substance: NIFEDIPINE
     Indication: CERVICAL INCOMPETENCE
     Dosage: 10 MG, TID
     Dates: start: 20161013

REACTIONS (1)
  - Uterine contractions during pregnancy [Unknown]

NARRATIVE: CASE EVENT DATE: 2016
